FAERS Safety Report 12230692 (Version 1)
Quarter: 2016Q2

REPORT INFORMATION
  Report Type: Report from Study
  Country: US (occurrence: US)
  Receive Date: 20160401
  Receipt Date: 20160401
  Transmission Date: 20160815
  Serious: No
  Sender: FDA-Public Use
  Company Number: ADR-2011-10068

PATIENT
  Age: 55 Year
  Sex: Female

DRUGS (9)
  1. BUPIVACAINE. [Suspect]
     Active Substance: BUPIVACAINE
     Dosage: 7.993 MG/DAY
     Route: 037
     Dates: start: 20101203
  2. BACLOFEN. [Suspect]
     Active Substance: BACLOFEN
     Dosage: 69.94 MCG/DAY
     Route: 037
     Dates: start: 20101203
  3. CLONIDINE. [Suspect]
     Active Substance: CLONIDINE
     Dosage: 44.95 MCG/DAY
     Route: 037
     Dates: end: 20101203
  4. DILAUDID [Suspect]
     Active Substance: HYDROMORPHONE HYDROCHLORIDE
  5. BUPIVACAINE. [Suspect]
     Active Substance: BUPIVACAINE
     Dosage: 8.990 MG/DAY
     Route: 037
     Dates: end: 20101203
  6. MORPHINE [Suspect]
     Active Substance: MORPHINE
     Dosage: 1.998 MG/DAY
     Route: 037
     Dates: start: 20101203
  7. CLONIDINE. [Suspect]
     Active Substance: CLONIDINE
     Dosage: 39.97 MCG/DAY
     Route: 037
     Dates: start: 20101203
  8. MORPHINE [Suspect]
     Active Substance: MORPHINE
     Dosage: 2.248 MG/DAY
     Route: 037
     Dates: end: 20101203
  9. BACLOFEN. [Suspect]
     Active Substance: BACLOFEN
     Dosage: 78.66 MCG/DAY
     Route: 037
     Dates: end: 20101203

REACTIONS (1)
  - Hypoaesthesia [Unknown]
